FAERS Safety Report 5347633-6 (Version None)
Quarter: 2007Q2

REPORT INFORMATION
  Report Type: 
  Country: None (occurrence: None)
  Receive Date: 20070604
  Receipt Date: 20070604
  Transmission Date: 20071010
  Serious: Yes (Hospitalization)
  Sender: FDA-Public Use
  Company Number: None

PATIENT
  Age: 49 Year
  Sex: Male
  Weight: 74.3899 kg

DRUGS (11)
  1. BEVACIZUMAB 25 MG/ML -4 ML VIALS GENENTECH [Suspect]
     Indication: PANCREATIC CARCINOMA
     Dosage: 745 MG EVERY 14 DAYS IV
     Route: 042
     Dates: start: 20070523, end: 20070523
  2. BEVACIZUMAB [Suspect]
  3. OXYCODONE HCL EXTENDED-RELEASE [Concomitant]
  4. NEXIUM [Concomitant]
  5. GAS-X [Concomitant]
  6. REGLAN [Concomitant]
  7. SENOKOT [Concomitant]
  8. CREON [Concomitant]
  9. PHENERGAN HCL [Concomitant]
  10. DECADRON [Concomitant]
  11. NEULAST [Concomitant]

REACTIONS (10)
  - AMNESIA [None]
  - BLOOD GLUCOSE INCREASED [None]
  - BLOOD PRESSURE DECREASED [None]
  - ELECTROCARDIOGRAM T WAVE INVERSION [None]
  - HAEMATEMESIS [None]
  - HAEMATOCRIT DECREASED [None]
  - HAEMOGLOBIN DECREASED [None]
  - LOSS OF CONSCIOUSNESS [None]
  - NAUSEA [None]
  - PLATELET COUNT DECREASED [None]
